FAERS Safety Report 20523130 (Version 1)
Quarter: 2022Q1

REPORT INFORMATION
  Report Type: Spontaneous
  Country: GB (occurrence: US)
  Receive Date: 20220227
  Receipt Date: 20220227
  Transmission Date: 20220423
  Serious: No
  Sender: FDA-Public Use
  Company Number: GB-SA-SAC20220221001368

PATIENT
  Sex: Female

DRUGS (1)
  1. DUPIXENT [Suspect]
     Active Substance: DUPILUMAB
     Indication: Dermatitis atopic
     Dosage: 300 MG (1 SYRINGE), QOW, 300MG/2ML
     Route: 058
     Dates: start: 20201117

REACTIONS (2)
  - COVID-19 [Unknown]
  - Eye irritation [Unknown]
